FAERS Safety Report 4487974-8 (Version None)
Quarter: 2004Q4

REPORT INFORMATION
  Report Type: 
  Country: None (occurrence: None)
  Receive Date: 20041028
  Receipt Date: 20041001
  Transmission Date: 20050328
  Serious: Yes (Hospitalization, Other)
  Sender: FDA-Public Use
  Company Number: CA-JNJFOC-20040910106

PATIENT
  Sex: Male
  Weight: 79 kg

DRUGS (3)
  1. REMICADE [Suspect]
     Route: 042
  2. REMICADE [Suspect]
     Indication: CROHN'S DISEASE
     Route: 042
  3. PREDNISONE [Concomitant]
     Route: 049

REACTIONS (13)
  - ABDOMINAL PAIN UPPER [None]
  - ARTHRALGIA [None]
  - CHEST PAIN [None]
  - CHILLS [None]
  - COUGH [None]
  - DIZZINESS [None]
  - EYE REDNESS [None]
  - FLUSHING [None]
  - HEADACHE [None]
  - INFUSION RELATED REACTION [None]
  - MYALGIA [None]
  - PHARYNGITIS [None]
  - PYREXIA [None]
